FAERS Safety Report 18188411 (Version 1)
Quarter: 2020Q3

REPORT INFORMATION
  Report Type: Spontaneous
  Country: ES (occurrence: ES)
  Receive Date: 20200824
  Receipt Date: 20200824
  Transmission Date: 20201103
  Serious: Yes (Other)
  Sender: FDA-Public Use
  Company Number: ES-PFIZER INC-2020323581

PATIENT
  Age: 2 Year
  Sex: Male
  Weight: 7 kg

DRUGS (6)
  1. MEROPENEM. [Suspect]
     Active Substance: MEROPENEM
     Indication: HYDRONEPHROSIS
  2. MEROPENEM. [Suspect]
     Active Substance: MEROPENEM
     Indication: INTESTINAL PSEUDO-OBSTRUCTION
     Dosage: 140 MG, 3X/DAY (FREQ:8 H;140MG/8H)
     Route: 042
     Dates: start: 20191223, end: 20191226
  3. MEROPENEM. [Suspect]
     Active Substance: MEROPENEM
     Indication: GASTROINTESTINAL DISORDER
  4. TEICOPLANIN [Suspect]
     Active Substance: TEICOPLANIN
     Indication: GASTROINTESTINAL DISORDER
  5. TEICOPLANIN [Suspect]
     Active Substance: TEICOPLANIN
     Indication: INTESTINAL PSEUDO-OBSTRUCTION
     Dosage: 70 MG, 2X/DAY (70MG/12H)
     Route: 042
     Dates: start: 20191223, end: 20191227
  6. TEICOPLANIN [Suspect]
     Active Substance: TEICOPLANIN
     Indication: HYDRONEPHROSIS

REACTIONS (3)
  - Product use in unapproved indication [Unknown]
  - Hepatitis [Recovered/Resolved]
  - Off label use [Unknown]

NARRATIVE: CASE EVENT DATE: 20191223
